FAERS Safety Report 11704288 (Version 1)
Quarter: 2015Q4

REPORT INFORMATION
  Report Type: Spontaneous
  Country: US (occurrence: None)
  Receive Date: 20151105
  Receipt Date: 20151105
  Transmission Date: 20160304
  Serious: Yes (Life-Threatening)
  Sender: FDA-Public Use
  Company Number: None

PATIENT
  Age: 65 Year
  Sex: Female
  Weight: 97 kg

DRUGS (14)
  1. FLUTICASONE/SALMETEROL [Concomitant]
     Active Substance: FLUTICASONE PROPIONATE\SALMETEROL XINAFOATE
  2. SIMVASTATIN. [Suspect]
     Active Substance: SIMVASTATIN
  3. VANCOMYCIN [Suspect]
     Active Substance: VANCOMYCIN
  4. CEFEPIME [Suspect]
     Active Substance: CEFEPIME HYDROCHLORIDE
     Indication: SEPSIS
     Route: 042
     Dates: start: 20150707, end: 20150707
  5. FOLIC ACID. [Concomitant]
     Active Substance: FOLIC ACID
  6. THIAMINE. [Suspect]
     Active Substance: THIAMINE
  7. VERAPAMIL [Suspect]
     Active Substance: VERAPAMIL HYDROCHLORIDE
  8. CEFEPIME [Suspect]
     Active Substance: CEFEPIME HYDROCHLORIDE
     Indication: CELLULITIS
     Route: 042
     Dates: start: 20150707, end: 20150707
  9. ALBUTEROL/ IPRATROIUM [Concomitant]
  10. MONTELUKAST [Concomitant]
     Active Substance: MONTELUKAST SODIUM
  11. VENLAFAXINE [Suspect]
     Active Substance: VENLAFAXINE HYDROCHLORIDE
  12. PREDNISONE. [Suspect]
     Active Substance: PREDNISONE
  13. MULTIVITAMIN WITH MINERALS [Concomitant]
     Active Substance: MINERALS\VITAMINS
  14. GUAIFENESIN. [Concomitant]
     Active Substance: GUAIFENESIN

REACTIONS (5)
  - Cardio-respiratory arrest [None]
  - Hypoxia [None]
  - Hypercapnia [None]
  - Chronic obstructive pulmonary disease [None]
  - Respiratory failure [None]

NARRATIVE: CASE EVENT DATE: 20150707
